FAERS Safety Report 14835185 (Version 2)
Quarter: 2018Q2

REPORT INFORMATION
  Report Type: Spontaneous
  Country: BR (occurrence: BR)
  Receive Date: 20180502
  Receipt Date: 20180530
  Transmission Date: 20180711
  Serious: Yes (Hospitalization, Other)
  Sender: FDA-Public Use
  Company Number: PHHY2018BR075914

PATIENT
  Age: 29 Year
  Sex: Female
  Weight: 72 kg

DRUGS (2)
  1. OLCADIL [Concomitant]
     Active Substance: CLOXAZOLAM
     Indication: ANXIETY
     Dosage: 1 DF, QD
     Route: 048
  2. TRILEPTAL [Suspect]
     Active Substance: OXCARBAZEPINE
     Indication: SEIZURE
     Dosage: 3 DF, QD (3 TABLETS A DAY)
     Route: 048

REACTIONS (7)
  - Oral discomfort [Recovering/Resolving]
  - Malaise [Recovering/Resolving]
  - Weight decreased [Recovering/Resolving]
  - Lactose intolerance [Recovering/Resolving]
  - Product use in unapproved indication [Unknown]
  - Seizure [Recovering/Resolving]
  - Pain [Recovering/Resolving]

NARRATIVE: CASE EVENT DATE: 2013
